FAERS Safety Report 6575294-7 (Version None)
Quarter: 2010Q1

REPORT INFORMATION
  Report Type: 
  Country: None (occurrence: None)
  Receive Date: 20100209
  Receipt Date: 20100129
  Transmission Date: 20100710
  Serious: Yes (Disabling)
  Sender: FDA-Public Use
  Company Number: CZ-ROCHE-679947

PATIENT
  Sex: Female

DRUGS (4)
  1. BONIVA [Suspect]
     Indication: OSTEOPOROSIS
     Route: 042
     Dates: start: 20100127
  2. BONIVA [Suspect]
     Dosage: FORM: PILLS
     Route: 048
  3. LETROX [Concomitant]
     Dosage: FREQUENCY: 1-0-0
  4. CALTRATE [Concomitant]
     Dosage: DRUG NAME: CALCRATE, FREQUENCY: 1-0-1 (IN THE MORNING AND EVENING)

REACTIONS (4)
  - BONE PAIN [None]
  - CHEST PAIN [None]
  - HYPERTENSION [None]
  - RESPIRATORY DISORDER [None]
